FAERS Safety Report 8396041-2 (Version None)
Quarter: 2012Q2

REPORT INFORMATION
  Report Type: 
  Country: None (occurrence: None)
  Receive Date: 20120530
  Receipt Date: 20120523
  Transmission Date: 20120825
  Serious: Yes (Hospitalization)
  Sender: FDA-Public Use
  Company Number: US-PFIZER INC-2012098699

PATIENT
  Sex: Male
  Weight: 97.959 kg

DRUGS (2)
  1. CENTRUM [Concomitant]
     Dosage: UNK
  2. LIPITOR [Suspect]
     Indication: BLOOD CHOLESTEROL INCREASED
     Dosage: 20 MG, 1X/DAY
     Route: 048
     Dates: start: 20120101, end: 20120417

REACTIONS (5)
  - INFECTION [None]
  - INFLUENZA [None]
  - VIRAL INFECTION [None]
  - RENAL FAILURE [None]
  - RHABDOMYOLYSIS [None]
